FAERS Safety Report 13510511 (Version 1)
Quarter: 2017Q2

REPORT INFORMATION
  Report Type: Spontaneous
  Country: US (occurrence: US)
  Receive Date: 20170503
  Receipt Date: 20170503
  Transmission Date: 20170830
  Serious: Yes (Other)
  Sender: FDA-Public Use
  Company Number: US-BAXTER-2017BAX013652

PATIENT
  Sex: Female

DRUGS (1)
  1. DIANEAL LOW CALCIUM PERITONEAL DIALYSIS SOLUTION WITH DEXTROSE [Suspect]
     Active Substance: CALCIUM CHLORIDE\DEXTROSE\MAGNESIUM CHLORIDE\SODIUM CHLORIDE\SODIUM LACTATE
     Indication: PERITONEAL DIALYSIS
     Route: 033

REACTIONS (8)
  - Discomfort [Unknown]
  - Diarrhoea [Unknown]
  - Muscular dystrophy [Unknown]
  - Sleep apnoea syndrome [Unknown]
  - Swelling [Unknown]
  - Hypertension [Unknown]
  - Dementia Alzheimer^s type [Unknown]
  - Arthritis [Unknown]

NARRATIVE: CASE EVENT DATE: 20170322
